FAERS Safety Report 20545741 (Version 17)
Quarter: 2022Q3

REPORT INFORMATION
  Report Type: Report from Study
  Country: CH (occurrence: None)
  Receive Date: 20220303
  Receipt Date: 20220706
  Transmission Date: 20221026
  Serious: Yes (Hospitalization)
  Sender: FDA-Public Use
  Company Number: CH-Eisai Medical Research-EC-2022-109642

PATIENT
  Age: 77 Year
  Sex: Male
  Weight: 78 kg

DRUGS (6)
  1. LENVATINIB [Suspect]
     Active Substance: LENVATINIB
     Indication: Hepatocellular carcinoma
     Route: 048
     Dates: start: 20220211, end: 20220223
  2. PEMBROLIZUMAB [Suspect]
     Active Substance: PEMBROLIZUMAB
     Indication: Hepatocellular carcinoma
     Dosage: MK-1308A (25 MG QUAVONLIMAB (MK-1308) (+) 400 MG PEMBROLIZUMAB (MK-3475))
     Route: 041
     Dates: start: 20220211, end: 20220211
  3. LISITRIL COMP. [Concomitant]
     Dates: start: 2021
  4. TENOFOVIR [Concomitant]
     Active Substance: TENOFOVIR
     Dates: start: 202110
  5. INDERAL [Concomitant]
     Active Substance: PROPRANOLOL HYDROCHLORIDE
     Dates: start: 202111
  6. QUAVONLIMAB [Suspect]
     Active Substance: QUAVONLIMAB

REACTIONS (2)
  - Pneumonia [Recovered/Resolved]
  - Colitis [Recovered/Resolved]

NARRATIVE: CASE EVENT DATE: 20220220
